FAERS Safety Report 11769902 (Version 2)
Quarter: 2016Q1

REPORT INFORMATION
  Report Type: Spontaneous
  Country: US (occurrence: US)
  Receive Date: 20151123
  Receipt Date: 20160212
  Transmission Date: 20160525
  Serious: No
  Sender: FDA-Public Use
  Company Number: US-LEO PHARMA-238340

PATIENT
  Age: 82 Year
  Sex: Male

DRUGS (1)
  1. PICATO [Suspect]
     Active Substance: INGENOL MEBUTATE
     Indication: PRECANCEROUS SKIN LESION
     Route: 061
     Dates: start: 20151107, end: 20151109

REACTIONS (3)
  - Application site pain [Recovered/Resolved]
  - Application site erythema [Recovered/Resolved]
  - Inappropriate schedule of drug administration [Unknown]
